FAERS Safety Report 20207862 (Version 1)
Quarter: 2021Q4

REPORT INFORMATION
  Report Type: Spontaneous
  Country: NL (occurrence: NL)
  Receive Date: 20211220
  Receipt Date: 20211220
  Transmission Date: 20220303
  Serious: Yes (Life-Threatening, Hospitalization, Other)
  Sender: FDA-Public Use
  Company Number: NL-PAION NETHERLANDS B.V.-PA2021NL000080

PATIENT
  Sex: Male

DRUGS (5)
  1. REMIFENTANIL [Suspect]
     Active Substance: REMIFENTANIL
     Indication: Sedative therapy
     Dosage: 4 MICROGRAM/KILOGRAM/HOUR
     Route: 042
     Dates: start: 20211103, end: 20211103
  2. BYFAVO [Suspect]
     Active Substance: REMIMAZOLAM BESYLATE
     Indication: Sedative therapy
     Dosage: 0.3 MILLIGRAM/KILOGRAM/HOUR
     Route: 042
     Dates: start: 20211103, end: 20211103
  3. BYFAVO [Suspect]
     Active Substance: REMIMAZOLAM BESYLATE
     Dosage: 2.5 MILLIGRAM
     Route: 040
     Dates: start: 20211103, end: 20211103
  4. BYFAVO [Suspect]
     Active Substance: REMIMAZOLAM BESYLATE
     Dosage: 5 MILLIGRAM
     Route: 042
     Dates: start: 20211103, end: 20211103
  5. BYFAVO [Suspect]
     Active Substance: REMIMAZOLAM BESYLATE
     Dosage: 2.5 MILLIGRAM
     Route: 040
     Dates: start: 20211103, end: 20211103

REACTIONS (2)
  - Cardiac arrest [Unknown]
  - Off label use [Recovered/Resolved]

NARRATIVE: CASE EVENT DATE: 20211103
